FAERS Safety Report 6520778-0 (Version None)
Quarter: 2009Q4

REPORT INFORMATION
  Report Type: 
  Country: None (occurrence: None)
  Receive Date: 20091229
  Receipt Date: 20091217
  Transmission Date: 20100525
  Serious: Yes (Hospitalization, Other)
  Sender: FDA-Public Use
  Company Number: NL-JNJFOC-20091206605

PATIENT
  Age: 44 Year
  Sex: Female

DRUGS (2)
  1. TRAMAL [Suspect]
     Indication: BACK PAIN
     Route: 065
  2. DIAZEPAM [Suspect]
     Indication: BACK PAIN
     Route: 065

REACTIONS (3)
  - DEPRESSION [None]
  - DRUG DEPENDENCE [None]
  - FEELING ABNORMAL [None]
